FAERS Safety Report 18232352 (Version 1)
Quarter: 2020Q3

REPORT INFORMATION
  Report Type: Spontaneous
  Country: US (occurrence: US)
  Receive Date: 20200904
  Receipt Date: 20200904
  Transmission Date: 20201103
  Serious: Yes (Hospitalization)
  Sender: FDA-Public Use
  Company Number: None

PATIENT
  Age: 4 Year
  Sex: Male
  Weight: 22.4 kg

DRUGS (1)
  1. METHOTREXATE (740) [Suspect]
     Active Substance: METHOTREXATE
     Dates: end: 20200715

REACTIONS (10)
  - Stomatitis [None]
  - Hypophagia [None]
  - Acute respiratory distress syndrome [None]
  - General physical health deterioration [None]
  - Malaise [None]
  - Tachypnoea [None]
  - Dyspnoea [None]
  - Oral mucosal eruption [None]
  - Respiratory distress [None]
  - Hypoxia [None]

NARRATIVE: CASE EVENT DATE: 20200822
